FAERS Safety Report 19620228 (Version 1)
Quarter: 2021Q3

REPORT INFORMATION
  Report Type: Spontaneous
  Country: US (occurrence: US)
  Receive Date: 20210728
  Receipt Date: 20210728
  Transmission Date: 20211014
  Serious: No
  Sender: FDA-Public Use
  Company Number: US-ROCHE-2749752

PATIENT
  Age: 71 Year
  Sex: Female

DRUGS (2)
  1. XELODA [Suspect]
     Active Substance: CAPECITABINE
     Indication: PRODUCT USED FOR UNKNOWN INDICATION
     Route: 048
     Dates: start: 202101
  2. XELODA [Suspect]
     Active Substance: CAPECITABINE
     Route: 048
     Dates: start: 202101

REACTIONS (11)
  - Skin exfoliation [Unknown]
  - Nausea [Unknown]
  - Alopecia [Unknown]
  - Nail disorder [Unknown]
  - Skin discolouration [Unknown]
  - Abscess limb [Recovered/Resolved]
  - Decreased appetite [Unknown]
  - Onychoclasis [Unknown]
  - Mental disorder [Unknown]
  - Hypoaesthesia [Unknown]
  - Tongue discolouration [Unknown]

NARRATIVE: CASE EVENT DATE: 20210107
